FAERS Safety Report 10479163 (Version 1)
Quarter: 2014Q3

REPORT INFORMATION
  Report Type: Spontaneous
  Country: FR (occurrence: FR)
  Receive Date: 20140926
  Receipt Date: 20140926
  Transmission Date: 20150326
  Serious: Yes (Hospitalization)
  Sender: FDA-Public Use
  Company Number: FR-PFIZER INC-2014264274

PATIENT
  Age: 56 Year
  Sex: Male

DRUGS (7)
  1. IBUPROFENE [Suspect]
     Active Substance: IBUPROFEN
     Indication: TOOTHACHE
     Dosage: UNK
     Route: 048
     Dates: start: 20140805, end: 20140808
  2. MONOTILDIEM [Concomitant]
     Active Substance: DILTIAZEM
     Dosage: UNK
  3. TRIATEC [Suspect]
     Active Substance: RAMIPRIL
     Indication: HYPERTENSION
     Dosage: UNK
     Route: 048
     Dates: end: 201408
  4. EUCREAS [Suspect]
     Active Substance: METFORMIN HYDROCHLORIDE\VILDAGLIPTIN
     Indication: DIABETES MELLITUS
     Dosage: UNK
     Route: 048
     Dates: end: 20140805
  5. PRAVASTATIN [Concomitant]
     Active Substance: PRAVASTATIN\PRAVASTATIN SODIUM
     Dosage: UNK
  6. LEVOTHYROX [Concomitant]
     Active Substance: LEVOTHYROXINE
     Dosage: UNK
  7. HYPERIUM [Concomitant]
     Active Substance: RILMENIDINE PHOSPHATE
     Dosage: UNK

REACTIONS (6)
  - Haematemesis [Unknown]
  - Renal failure acute [Recovered/Resolved]
  - Diarrhoea [Unknown]
  - Decreased appetite [Unknown]
  - Faeces discoloured [Unknown]
  - Abdominal pain upper [Unknown]

NARRATIVE: CASE EVENT DATE: 201408
